FAERS Safety Report 4594964-3 (Version None)
Quarter: 2005Q1

REPORT INFORMATION
  Report Type: 
  Country: None (occurrence: None)
  Receive Date: 20050223
  Receipt Date: 20050210
  Transmission Date: 20050727
  Serious: Yes (Life-Threatening, Disabling)
  Sender: FDA-Public Use
  Company Number: 2005029138

PATIENT
  Age: 70 Year
  Sex: Male

DRUGS (4)
  1. CELEBREX [Suspect]
     Indication: MUSCULOSKELETAL PAIN
     Dosage: 400 MG (200 MG, 2 IN 1 D), ORAL
     Route: 048
     Dates: start: 20030102, end: 20041221
  2. AMLODIPINE BESYLATE [Concomitant]
  3. SALURES-K (BENDROFLUMETHIAZIDE, POTASSIUM CHLORIDE) [Concomitant]
  4. VENLAFAXINE HCL [Concomitant]

REACTIONS (3)
  - CEREBRAL INFARCTION [None]
  - DEMENTIA [None]
  - GASTRIC ULCER [None]
